FAERS Safety Report 7540717-3 (Version None)
Quarter: 2011Q2

REPORT INFORMATION
  Report Type: 
  Country: None (occurrence: None)
  Receive Date: 20110603
  Receipt Date: 20110525
  Transmission Date: 20111010
  Serious: Yes (Other)
  Sender: FDA-Public Use
  Company Number: 2011SP024349

PATIENT
  Sex: Male

DRUGS (4)
  1. DIKLOFENAK [Concomitant]
  2. NASONEX [Suspect]
     Indication: SWELLING
     Dosage: QD; NAS
     Route: 045
     Dates: start: 20110518, end: 20110524
  3. NASONEX [Suspect]
     Indication: PHARYNGEAL OEDEMA
     Dosage: QD; NAS
     Route: 045
     Dates: start: 20110518, end: 20110524
  4. NASONEX [Suspect]
     Indication: NASAL CONGESTION
     Dosage: QD; NAS
     Route: 045
     Dates: start: 20110518, end: 20110524

REACTIONS (2)
  - SWELLING FACE [None]
  - ERYTHEMA [None]
